FAERS Safety Report 24807102 (Version 1)
Quarter: 2025Q1

REPORT INFORMATION
  Report Type: Spontaneous
  Country: US (occurrence: US)
  Receive Date: 20250104
  Receipt Date: 20250104
  Transmission Date: 20250409
  Serious: Yes (Other)
  Sender: RIGEL PHARMACEUTICALS
  Company Number: US-RIGEL Pharmaceuticals, INC-20250100011

PATIENT
  Age: 40 Year
  Sex: Male

DRUGS (2)
  1. GAVRETO [Suspect]
     Active Substance: PRALSETINIB
     Indication: Multiple endocrine neoplasia Type 2A
     Route: 065
     Dates: start: 2019
  2. GAVRETO [Suspect]
     Active Substance: PRALSETINIB
     Indication: Medullary thyroid cancer

REACTIONS (3)
  - Peripheral artery occlusion [Unknown]
  - Leg amputation [Unknown]
  - Arteriosclerosis [Unknown]
